FAERS Safety Report 23960672 (Version 1)
Quarter: 2024Q2

REPORT INFORMATION
  Report Type: Spontaneous
  Country: PL (occurrence: PL)
  Receive Date: 20240611
  Receipt Date: 20240611
  Transmission Date: 20240716
  Serious: Yes (Disabling)
  Sender: FDA-Public Use
  Company Number: PL-MLMSERVICE-20240523-PI074706-00255-1

PATIENT
  Age: 42 Year
  Sex: Male

DRUGS (11)
  1. PACLITAXEL [Suspect]
     Active Substance: PACLITAXEL
     Indication: Kaposi^s sarcoma
     Dosage: ONCE A WEEK
     Dates: end: 2022
  2. ONDANSETRON [Concomitant]
     Active Substance: ONDANSETRON
     Dates: start: 2021
  3. FILGRASTIM [Concomitant]
     Active Substance: FILGRASTIM
     Indication: Haemoglobin decreased
     Dates: start: 2021
  4. DEXAMETHASONE [Concomitant]
     Active Substance: DEXAMETHASONE
     Dates: start: 2021
  5. HYDROCORTISONE [Concomitant]
     Active Substance: HYDROCORTISONE
     Dates: start: 2021
  6. OMEPRAZOLE [Concomitant]
     Active Substance: DONEPEZIL HYDROCHLORIDE\OMEPRAZOLE\OMEPRAZOLE MAGNESIUM
     Dates: start: 2021
  7. MEROPENEM [Concomitant]
     Active Substance: MEROPENEM
     Indication: Evidence based treatment
     Dates: start: 2021
  8. EMTRICITABINE\TENOFOVIR DISOPROXIL [Concomitant]
     Active Substance: EMTRICITABINE\TENOFOVIR DISOPROXIL
     Indication: Antiretroviral therapy
     Dates: start: 2021
  9. CLEMASTINE [Concomitant]
     Active Substance: CLEMASTINE
     Dates: start: 2021
  10. PENICILLIN G [Concomitant]
     Active Substance: PENICILLIN G
     Indication: Syphilis
     Dates: start: 2021
  11. PACLITAXEL [Suspect]
     Active Substance: PACLITAXEL
     Indication: Kaposi^s sarcoma
     Dosage: ONCE A WEEK
     Dates: start: 2021, end: 2021

REACTIONS (2)
  - Axonal neuropathy [Recovering/Resolving]
  - Peripheral sensorimotor neuropathy [Recovering/Resolving]

NARRATIVE: CASE EVENT DATE: 20220101
